FAERS Safety Report 25986260 (Version 1)
Quarter: 2025Q4

REPORT INFORMATION
  Report Type: Spontaneous
  Country: GB (occurrence: GB)
  Receive Date: 20251031
  Receipt Date: 20251031
  Transmission Date: 20260118
  Serious: Yes (Hospitalization, Other)
  Sender: ELI LILLY AND COMPANY
  Company Number: None

PATIENT
  Age: 54 Year
  Sex: Female
  Weight: 90 kg

DRUGS (6)
  1. MOUNJARO [Suspect]
     Active Substance: TIRZEPATIDE
     Indication: Osteoarthritis
     Dosage: 5 MG, UNKNOWN (OVER 4 WEEKS)
     Route: 065
     Dates: start: 20250807
  2. MOUNJARO [Suspect]
     Active Substance: TIRZEPATIDE
     Indication: Osteoarthritis
     Dosage: 5 MG, UNKNOWN (OVER 4 WEEKS)
     Route: 065
     Dates: start: 20250807
  3. MOUNJARO [Suspect]
     Active Substance: TIRZEPATIDE
     Indication: Osteoarthritis
     Dosage: UNK UNK, UNKNOWN
     Route: 065
  4. CANDESARTAN [Concomitant]
     Active Substance: CANDESARTAN
     Indication: Hypertension
     Dosage: 16 MG
  5. SERTRALINE [Concomitant]
     Active Substance: SERTRALINE HYDROCHLORIDE
     Indication: Anxiety
     Dosage: UNK
  6. LANSOPRAZOLE [Concomitant]
     Active Substance: LANSOPRAZOLE
     Indication: Gastrooesophageal reflux disease
     Dosage: UNK

REACTIONS (2)
  - Cholelithiasis [Not Recovered/Not Resolved]
  - Off label use [Unknown]

NARRATIVE: CASE EVENT DATE: 20250807
